FAERS Safety Report 6957903-3 (Version None)
Quarter: 2010Q3

REPORT INFORMATION
  Report Type: 
  Country: None (occurrence: None)
  Receive Date: 20100830
  Receipt Date: 20100830
  Transmission Date: 20110219
  Serious: No
  Sender: FDA-Public Use
  Company Number: None

PATIENT
  Sex: Female

DRUGS (1)
  1. DILAUDID [Suspect]
     Indication: PAIN MANAGEMENT
     Dosage: 4 TO 6 TABS AS NEEDED PO
     Route: 048
     Dates: start: 20100813, end: 20100827

REACTIONS (3)
  - DRUG INEFFECTIVE [None]
  - OVERDOSE [None]
  - PRODUCT SUBSTITUTION ISSUE [None]
